FAERS Safety Report 24414894 (Version 1)
Quarter: 2024Q4

REPORT INFORMATION
  Report Type: Report from Study
  Country: US (occurrence: US)
  Receive Date: 20241009
  Receipt Date: 20241009
  Transmission Date: 20250115
  Serious: Yes (Other)
  Sender: ABBVIE
  Company Number: US-ABBVIE-5954434

PATIENT
  Sex: Female

DRUGS (1)
  1. VENCLEXTA [Suspect]
     Active Substance: VENETOCLAX
     Indication: Acute myeloid leukaemia
     Route: 048
     Dates: start: 20240815

REACTIONS (8)
  - Central venous catheterisation [Unknown]
  - Dermatitis contact [Unknown]
  - Medical device site erythema [Unknown]
  - Pleural effusion [Recovering/Resolving]
  - Alopecia [Unknown]
  - Weight gain poor [Unknown]
  - Constipation [Unknown]
  - Device occlusion [Unknown]

NARRATIVE: CASE EVENT DATE: 20240101
